FAERS Safety Report 10721404 (Version 3)
Quarter: 2015Q1

REPORT INFORMATION
  Report Type: Report from Study
  Country: US (occurrence: US)
  Receive Date: 20150119
  Receipt Date: 20150213
  Transmission Date: 20150721
  Serious: Yes (Other)
  Sender: FDA-Public Use
  Company Number: US-BAYER-2015-007543

PATIENT
  Age: 65 Year
  Sex: Male

DRUGS (1)
  1. NEXAVAR [Suspect]
     Active Substance: SORAFENIB
     Indication: HEPATOCELLULAR CARCINOMA
     Dosage: 400 MG, BID
     Route: 048
     Dates: start: 20150108

REACTIONS (11)
  - Abdominal pain [Recovering/Resolving]
  - Abdominal distension [None]
  - Diarrhoea [None]
  - Peripheral swelling [Recovering/Resolving]
  - Respiratory tract congestion [None]
  - Emphysema [None]
  - Pain in extremity [None]
  - Hepatic enzyme increased [None]
  - Nausea [None]
  - Cough [None]
  - Fatigue [Not Recovered/Not Resolved]

NARRATIVE: CASE EVENT DATE: 2015
